FAERS Safety Report 22534325 (Version 3)
Quarter: 2023Q2

REPORT INFORMATION
  Report Type: Report from Study
  Country: CA (occurrence: None)
  Receive Date: 20230608
  Receipt Date: 20230629
  Transmission Date: 20230721
  Serious: Yes (Other)
  Sender: FDA-Public Use
  Company Number: 2023A129906

PATIENT
  Age: 863 Month
  Sex: Male
  Weight: 68 kg

DRUGS (5)
  1. IMFINZI [Suspect]
     Active Substance: DURVALUMAB
     Indication: Biliary neoplasm
     Route: 042
     Dates: start: 20230330, end: 20230620
  2. WELLBUTRIN [Concomitant]
     Active Substance: BUPROPION HYDROCHLORIDE
  3. IRON [Concomitant]
     Active Substance: IRON
  4. VITAMIN B [Concomitant]
     Active Substance: VITAMIN B
  5. VITAMIN D [Concomitant]
     Active Substance: VITAMIN D NOS

REACTIONS (2)
  - Lipoma [Unknown]
  - Malignant neoplasm progression [Unknown]

NARRATIVE: CASE EVENT DATE: 20230501
